FAERS Safety Report 8021118-0 (Version None)
Quarter: 2012Q1

REPORT INFORMATION
  Report Type: 
  Country: None (occurrence: None)
  Receive Date: 20120104
  Receipt Date: 20111228
  Transmission Date: 20120608
  Serious: No
  Sender: FDA-Public Use
  Company Number: US-PFIZER INC-2010089400

PATIENT
  Sex: Male
  Weight: 67.12 kg

DRUGS (3)
  1. VIAGRA [Suspect]
     Indication: ERECTILE DYSFUNCTION
     Dosage: 100 MG, AS NEEDED
     Route: 048
     Dates: start: 20090101, end: 20111221
  2. NORVASC [Concomitant]
     Indication: HYPERTENSION
     Dosage: 5 MG, 1X/DAY
  3. KLONOPIN [Concomitant]
     Indication: ANXIETY
     Dosage: 1 MG, 3X/DAY

REACTIONS (1)
  - DRUG INEFFECTIVE [None]
